FAERS Safety Report 9918506 (Version 1)
Quarter: 2014Q1

REPORT INFORMATION
  Report Type: Spontaneous
  Country: US (occurrence: US)
  Receive Date: 20140224
  Receipt Date: 20140224
  Transmission Date: 20141002
  Serious: No
  Sender: FDA-Public Use
  Company Number: US-BIOGENIDEC-2014BI014746

PATIENT
  Sex: Male

DRUGS (10)
  1. TECFIDERA [Suspect]
     Indication: MULTIPLE SCLEROSIS
     Route: 048
     Dates: start: 20131116, end: 20131122
  2. TECFIDERA [Suspect]
     Indication: MULTIPLE SCLEROSIS
     Route: 048
     Dates: start: 20131123
  3. ADVAIR [Concomitant]
  4. D3 [Concomitant]
  5. CLARITIN [Concomitant]
  6. LYRICA [Concomitant]
  7. ALBUTEROL [Concomitant]
  8. MUCINEX [Concomitant]
  9. SINGULAR [Concomitant]
  10. ASPIRIN [Concomitant]

REACTIONS (1)
  - Sinusitis [Recovered/Resolved]
